FAERS Safety Report 9917562 (Version 8)
Quarter: 2015Q3

REPORT INFORMATION
  Report Type: Report from Study
  Country: GB (occurrence: GB)
  Receive Date: 20140221
  Receipt Date: 20150714
  Transmission Date: 20151125
  Serious: Yes (Life-Threatening, Hospitalization)
  Sender: FDA-Public Use
  Company Number: PHHO2012GB007906

PATIENT
  Age: 77 Year
  Sex: Male

DRUGS (11)
  1. AMITRIPTYLINE [Concomitant]
     Active Substance: AMITRIPTYLINE
     Indication: PRODUCT USED FOR UNKNOWN INDICATION
     Dosage: 10 MG, QD
     Route: 048
  2. ICL670A [Suspect]
     Active Substance: DEFERASIROX
     Indication: MYELODYSPLASTIC SYNDROME
     Dosage: 1.5 G
     Route: 065
     Dates: start: 20110822, end: 20110913
  3. SPIRONOLACTONE. [Concomitant]
     Active Substance: SPIRONOLACTONE
     Indication: FLUID RETENTION
     Route: 065
     Dates: start: 20111207
  4. XALATAN [Concomitant]
     Active Substance: LATANOPROST
     Indication: GLAUCOMA
     Route: 065
     Dates: start: 20100219
  5. GLYCEROL [Concomitant]
     Active Substance: GLYCERIN
     Indication: CONSTIPATION
     Route: 065
     Dates: start: 20110630
  6. LENOGRASTIM [Concomitant]
     Active Substance: LENOGRASTIM
     Indication: MYELODYSPLASTIC SYNDROME
     Route: 065
     Dates: start: 200907
  7. DOXEPIN [Concomitant]
     Active Substance: DOXEPIN
     Route: 065
     Dates: start: 20120117
  8. ICL670A [Suspect]
     Active Substance: DEFERASIROX
     Dosage: UNK
     Route: 065
     Dates: start: 20120305
  9. FERRIPROX [Concomitant]
     Active Substance: DEFERIPRONE
     Indication: IRON OVERLOAD
     Route: 065
     Dates: start: 20120911
  10. ASPIRIN. [Concomitant]
     Active Substance: ASPIRIN
     Indication: PROPHYLAXIS
     Dosage: 75 MG, QD
     Route: 048
     Dates: start: 2003, end: 20110913
  11. FRUSEMIDE [Concomitant]
     Active Substance: FUROSEMIDE
     Indication: OEDEMA
     Dosage: 20 MG, QD
     Route: 048
     Dates: start: 20110630

REACTIONS (25)
  - Aspiration [Unknown]
  - Anastomotic leak [Recovered/Resolved]
  - Atrial fibrillation [Recovered/Resolved]
  - Blood creatinine increased [Unknown]
  - Diverticulum [Unknown]
  - Fatigue [Unknown]
  - Acute coronary syndrome [Recovered/Resolved]
  - Eczema [Unknown]
  - Erythema [Unknown]
  - Pleural effusion [Recovered/Resolved]
  - Monocytosis [Unknown]
  - Pelvic haematoma [Unknown]
  - Dyspnoea [Unknown]
  - Rectal haemorrhage [Unknown]
  - Oropharyngeal candidiasis [Unknown]
  - Gastrointestinal haemorrhage [Recovered/Resolved]
  - Postoperative ileus [Unknown]
  - Pulmonary oedema [Recovered/Resolved]
  - Gout [Unknown]
  - Dermatitis contact [Unknown]
  - Oxygen saturation decreased [Unknown]
  - Leukaemoid reaction [Unknown]
  - Duodenal ulcer [Recovered/Resolved]
  - Haematochezia [Recovered/Resolved]
  - Haemoglobin decreased [Recovered/Resolved]

NARRATIVE: CASE EVENT DATE: 20110908
